FAERS Safety Report 8050462-6 (Version None)
Quarter: 2012Q1

REPORT INFORMATION
  Report Type: 
  Country: None (occurrence: None)
  Receive Date: 20120117
  Receipt Date: 20120113
  Transmission Date: 20120608
  Serious: No
  Sender: FDA-Public Use
  Company Number: US-TEVA-317844USA

PATIENT
  Sex: Female
  Weight: 99.88 kg

DRUGS (2)
  1. NAPROXEN (ALEVE) [Concomitant]
     Indication: HEADACHE
     Route: 048
  2. PLAN B ONE-STEP [Suspect]
     Indication: POST COITAL CONTRACEPTION
     Dosage: 1.5 MILLIGRAM;
     Route: 048
     Dates: start: 20120113, end: 20120113

REACTIONS (2)
  - PELVIC PAIN [None]
  - NIPPLE PAIN [None]
